FAERS Safety Report 4446913-6 (Version None)
Quarter: 2004Q3

REPORT INFORMATION
  Report Type: 
  Country: None (occurrence: None)
  Receive Date: 20040908
  Receipt Date: 20040823
  Transmission Date: 20050211
  Serious: Yes (Hospitalization)
  Sender: FDA-Public Use
  Company Number: DSA_24357_2004

PATIENT
  Age: 70 Year
  Sex: Female

DRUGS (6)
  1. TEVETEN [Suspect]
     Indication: HYPERTENSION
     Dosage: 600 MG Q DAY PO
     Route: 048
     Dates: start: 20021217, end: 20030628
  2. SKELETINE [Concomitant]
  3. LABETALOL HCL [Concomitant]
  4. ASCAL [Concomitant]
  5. PARIET [Concomitant]
  6. CHLORTALIDON [Concomitant]

REACTIONS (4)
  - CARDIOMEGALY [None]
  - DRUG INTOLERANCE [None]
  - HYPERTENSION [None]
  - THERAPY NON-RESPONDER [None]
